FAERS Safety Report 22652984 (Version 1)
Quarter: 2023Q2

REPORT INFORMATION
  Report Type: Report from Study
  Country: US (occurrence: US)
  Receive Date: 20230629
  Receipt Date: 20230629
  Transmission Date: 20230722
  Serious: Yes (Hospitalization)
  Sender: FDA-Public Use
  Company Number: US-ABBVIE-5308342

PATIENT
  Sex: Female

DRUGS (1)
  1. IMBRUVICA [Suspect]
     Active Substance: IBRUTINIB
     Indication: Acute lymphocytic leukaemia
     Route: 048

REACTIONS (7)
  - Sputum discoloured [Unknown]
  - Acne [Unknown]
  - Joint swelling [Unknown]
  - Contusion [Not Recovered/Not Resolved]
  - Pulmonary pain [Unknown]
  - Arthralgia [Unknown]
  - Viral infection [Unknown]
